FAERS Safety Report 8567646-0 (Version None)
Quarter: 2012Q3

REPORT INFORMATION
  Report Type: 
  Country: None (occurrence: None)
  Receive Date: 20120803
  Receipt Date: 20120719
  Transmission Date: 20120928
  Serious: Yes (Hospitalization, Other)
  Sender: FDA-Public Use
  Company Number: JP-ROCHE-624493

PATIENT
  Sex: Female
  Weight: 50 kg

DRUGS (33)
  1. ACTEMRA [Suspect]
     Route: 041
     Dates: start: 20081118, end: 20081118
  2. ACTEMRA [Suspect]
     Route: 041
     Dates: start: 20100809, end: 20100809
  3. WARFARIN SODIUM [Concomitant]
     Route: 048
  4. FERROUS CITRATE [Concomitant]
     Dosage: FORM: ORAL FORMULATION (NOT OTHERWISE SPECIFIED).
     Route: 048
  5. ACTEMRA [Suspect]
     Indication: RHEUMATOID ARTHRITIS
     Route: 041
     Dates: start: 20081021, end: 20081021
  6. ACTEMRA [Suspect]
     Route: 041
     Dates: start: 20091110, end: 20091110
  7. ACTEMRA [Suspect]
     Route: 041
     Dates: start: 20100112, end: 20100112
  8. ACTEMRA [Suspect]
     Route: 041
     Dates: start: 20100707, end: 20100707
  9. ACTEMRA [Suspect]
     Route: 041
     Dates: start: 20100907, end: 20100907
  10. ACTEMRA [Suspect]
     Route: 041
     Dates: start: 20100209, end: 20100209
  11. METALCAPTASE [Concomitant]
     Route: 048
  12. ACTEMRA [Suspect]
     Route: 041
     Dates: start: 20081216, end: 20081216
  13. ACTEMRA [Suspect]
     Route: 041
     Dates: start: 20090814, end: 20090814
  14. TACROLIMUS [Suspect]
     Dosage: INFUSION RATE DECREASED
     Route: 048
  15. ACTEMRA [Suspect]
     Route: 041
     Dates: start: 20090612, end: 20090612
  16. ACTEMRA [Suspect]
     Route: 041
     Dates: start: 20091006, end: 20091006
  17. ACTEMRA [Suspect]
     Route: 041
     Dates: start: 20100609, end: 20100609
  18. ACTEMRA [Suspect]
     Route: 041
     Dates: start: 20101005, end: 20101005
  19. ITRACONAZOLE [Concomitant]
     Route: 048
  20. ACTEMRA [Suspect]
     Route: 041
     Dates: start: 20090707, end: 20090707
  21. LANSOPRAZOLE [Concomitant]
     Route: 048
  22. WARFARIN SODIUM [Concomitant]
     Route: 048
  23. CELECOXIB [Concomitant]
     Dosage: DRUG: CELECOX.
     Route: 048
  24. ACTEMRA [Suspect]
     Route: 041
     Dates: start: 20090210, end: 20090210
  25. ACTEMRA [Suspect]
     Route: 041
     Dates: start: 20100323, end: 20100323
  26. PREDNISOLONE [Suspect]
     Indication: RHEUMATOID ARTHRITIS
     Dosage: FORM: ORAL FORMULATION (NOT OTHERWISE SPECIFIED).
     Route: 048
  27. ALENDRONATE SODIUM [Concomitant]
     Dosage: DRUG: BONALON 35MG.
     Route: 048
  28. ACTEMRA [Suspect]
     Route: 041
     Dates: start: 20090113, end: 20090113
  29. ACTEMRA [Suspect]
     Route: 041
     Dates: start: 20091215, end: 20091215
  30. ACTEMRA [Suspect]
     Route: 041
     Dates: start: 20100420, end: 20100420
  31. TACROLIMUS [Suspect]
     Indication: RHEUMATOID ARTHRITIS
     Route: 048
  32. WARFARIN SODIUM [Concomitant]
     Dosage: INFUSION RATE DECREASED
     Route: 048
  33. AMITRIPTYLINE HCL [Concomitant]
     Route: 048

REACTIONS (6)
  - URINARY TRACT INFECTION [None]
  - DISLOCATION OF VERTEBRA [None]
  - CELLULITIS [None]
  - VENOUS THROMBOSIS LIMB [None]
  - MENINGIOMA [None]
  - JOINT DISLOCATION [None]
